FAERS Safety Report 12777976 (Version 1)
Quarter: 2016Q3

REPORT INFORMATION
  Report Type: Spontaneous
  Country: US (occurrence: US)
  Receive Date: 20160924
  Receipt Date: 20160924
  Transmission Date: 20161109
  Serious: No
  Sender: FDA-Public Use
  Company Number: US-JAZZ-2016-US-010928

PATIENT
  Sex: Male

DRUGS (25)
  1. MUCINEX ER [Concomitant]
  2. TRUSOPT [Concomitant]
     Active Substance: DORZOLAMIDE HYDROCHLORIDE
  3. VITAMIN B12 [Concomitant]
     Active Substance: CYANOCOBALAMIN
  4. VITAMIN E [Concomitant]
     Active Substance: .ALPHA.-TOCOPHEROL
  5. ARGININE HCL [Concomitant]
     Active Substance: ARGININE HYDROCHLORIDE
  6. MAGNESIUM OXIDE. [Concomitant]
     Active Substance: MAGNESIUM OXIDE
  7. PROVIGIL [Concomitant]
     Active Substance: MODAFINIL
  8. PROBIOTIC [Concomitant]
     Active Substance: PROBIOTICS NOS
  9. AMARYL [Concomitant]
     Active Substance: GLIMEPIRIDE
  10. BRIMONIDINE [Concomitant]
     Active Substance: BRIMONIDINE TARTRATE
  11. DEMADEX [Concomitant]
     Active Substance: TORSEMIDE
  12. PHOSLO [Concomitant]
     Active Substance: CALCIUM ACETATE
  13. XYREM [Suspect]
     Active Substance: SODIUM OXYBATE
     Indication: NARCOLEPSY
     Dosage: 1.5 G, BID
     Route: 048
     Dates: start: 201605
  14. CLARITIN [Concomitant]
     Active Substance: LORATADINE
  15. COREG [Concomitant]
     Active Substance: CARVEDILOL
  16. IMODIUM A-D [Concomitant]
     Active Substance: LOPERAMIDE HYDROCHLORIDE
  17. K-TAB [Concomitant]
     Active Substance: POTASSIUM CHLORIDE
  18. XYREM [Suspect]
     Active Substance: SODIUM OXYBATE
     Indication: CATAPLEXY
  19. TIMOPTIC [Concomitant]
     Active Substance: TIMOLOL MALEATE
  20. VITAMIN C [Concomitant]
     Active Substance: ASCORBIC ACID
  21. VITAMIN D3 [Concomitant]
     Active Substance: CHOLECALCIFEROL
  22. TRAVOPROST [Concomitant]
     Active Substance: TRAVOPROST
  23. NORVASC [Concomitant]
     Active Substance: AMLODIPINE BESYLATE
  24. LISINOPRIL. [Concomitant]
     Active Substance: LISINOPRIL
  25. ONE DAILY COMPLETE [Concomitant]

REACTIONS (4)
  - Dyspnoea [Recovering/Resolving]
  - Cough [Not Recovered/Not Resolved]
  - Arthropathy [Not Recovered/Not Resolved]
  - Wrong technique in product usage process [Not Recovered/Not Resolved]

NARRATIVE: CASE EVENT DATE: 2016
